FAERS Safety Report 13990345 (Version 1)
Quarter: 2017Q3

REPORT INFORMATION
  Report Type: Spontaneous
  Country: US (occurrence: US)
  Receive Date: 20170920
  Receipt Date: 20170920
  Transmission Date: 20171128
  Serious: No
  Sender: FDA-Public Use
  Company Number: US-ASTRAZENECA-2017SE95466

PATIENT
  Sex: Female
  Weight: 106.1 kg

DRUGS (3)
  1. PULMICORT FLEXHALER [Suspect]
     Active Substance: BUDESONIDE
     Indication: ASTHMA
     Dosage: 180.0 MICROGRAMS ONE PUFF TWO TIMES A DAY
     Route: 055
     Dates: start: 20170727
  2. VITAMINS NOS [Concomitant]
     Active Substance: VITAMINS
     Indication: ADRENAL DISORDER
  3. PROAIR HFA [Concomitant]
     Active Substance: ALBUTEROL SULFATE
     Indication: INHALATION THERAPY
     Dosage: AS REQUIRED

REACTIONS (4)
  - Drug dose omission [Unknown]
  - Drug effect decreased [Unknown]
  - Fatigue [Unknown]
  - Obstructive airways disorder [Unknown]
